FAERS Safety Report 9276739 (Version 3)
Quarter: 2013Q3

REPORT INFORMATION
  Report Type: Spontaneous
  Country: JP (occurrence: JP)
  Receive Date: 20130507
  Receipt Date: 20130930
  Transmission Date: 20140515
  Serious: Yes (Other)
  Sender: FDA-Public Use
  Company Number: JP-GILEAD-2013-0074754

PATIENT
  Sex: Male

DRUGS (5)
  1. HEPSERA [Suspect]
     Indication: HEPATITIS B
     Dosage: 10 MG, QD
     Route: 048
     Dates: start: 20050302, end: 20130427
  2. ZEFIX [Suspect]
     Indication: CHRONIC HEPATITIS B
     Dosage: 50 MG, QD
     Route: 048
     Dates: start: 20021023
  3. FAMOTIDINE [Concomitant]
     Indication: GASTRITIS
     Dosage: 10MG PER DAY
     Route: 048
     Dates: start: 19990420
  4. PROMAC                             /00024401/ [Concomitant]
     Dosage: UNK
     Route: 048
     Dates: start: 20020219
  5. URSO                               /00465701/ [Concomitant]
     Indication: CHRONIC HEPATITIS B
     Dosage: 100 MG, TID
     Route: 048
     Dates: start: 19990420

REACTIONS (6)
  - Exostosis [Unknown]
  - Chest pain [Recovered/Resolved]
  - Pain in extremity [Recovered/Resolved]
  - Fanconi syndrome acquired [Recovering/Resolving]
  - Rib fracture [Unknown]
  - Tenderness [Unknown]
